FAERS Safety Report 4808962-5 (Version None)
Quarter: 2005Q4

REPORT INFORMATION
  Report Type: 
  Country: None (occurrence: None)
  Receive Date: 20051025
  Receipt Date: 20050913
  Transmission Date: 20060501
  Serious: Yes (Hospitalization)
  Sender: FDA-Public Use
  Company Number: US-ROCHE-417426

PATIENT
  Age: 41 Year
  Sex: Female

DRUGS (4)
  1. CAPECITABINE [Suspect]
     Indication: BREAST CANCER
     Dosage: NO REPORTED THERAPY DETAILS.
     Route: 048
     Dates: start: 20050311
  2. CAPECITABINE [Suspect]
     Dosage: REPORTED: 3050 MG ALSO TAKEN ON 22 MAY 2005.
     Route: 048
     Dates: start: 20050513
  3. IXABEPILONE [Suspect]
     Indication: BREAST CANCER
     Dosage: NO REPORTED THERAPY DETAILS.
     Route: 042
     Dates: start: 20050311
  4. IXABEPILONE [Suspect]
     Route: 042
     Dates: start: 20050513, end: 20050513

REACTIONS (1)
  - PNEUMONITIS [None]
